FAERS Safety Report 8524039-X (Version None)
Quarter: 2012Q3

REPORT INFORMATION
  Report Type: 
  Country: None (occurrence: None)
  Receive Date: 20120720
  Receipt Date: 20120716
  Transmission Date: 20120928
  Serious: Yes (Death)
  Sender: FDA-Public Use
  Company Number: US-CELGENEUS-163-21880-12071818

PATIENT
  Sex: Male
  Weight: 102 kg

DRUGS (6)
  1. REVLIMID [Suspect]
     Indication: LYMPHOMA
     Dosage: 10 MILLIGRAM
     Route: 048
     Dates: start: 20111101
  2. DEXAMETHASONE [Concomitant]
     Dosage: 4 MILLIGRAM
     Route: 065
  3. DIGOXIN [Concomitant]
     Dosage: 125 MICROGRAM
     Route: 065
  4. SULFAMETHOXAZOLE AND TRIMETHOPRIM [Concomitant]
     Route: 065
  5. METOPROLOL SUCCINATE [Concomitant]
     Dosage: 150 MILLIGRAM
     Route: 065
  6. OMEPRAZOLE [Concomitant]
     Dosage: 40 MILLIGRAM
     Route: 065

REACTIONS (1)
  - DEATH [None]
